FAERS Safety Report 15775207 (Version 2)
Quarter: 2019Q1

REPORT INFORMATION
  Report Type: Spontaneous
  Country: AT (occurrence: AT)
  Receive Date: 20181231
  Receipt Date: 20190301
  Transmission Date: 20190417
  Serious: Yes (Hospitalization, Other)
  Sender: FDA-Public Use
  Company Number: AT-ACCORD-060595

PATIENT
  Age: 67 Year
  Sex: Female

DRUGS (16)
  1. SERTRALINE [Suspect]
     Active Substance: SERTRALINE HYDROCHLORIDE
     Indication: PRODUCT USED FOR UNKNOWN INDICATION
     Route: 048
     Dates: start: 20170614, end: 20170619
  2. MOLAXOLE [Concomitant]
     Active Substance: POLYETHYLENE GLYCOL 3350\POTASSIUM CHLORIDE\SODIUM BICARBONATE\SODIUM CHLORIDE
     Dates: start: 20170614, end: 20170707
  3. PANTOLOC [Concomitant]
     Active Substance: PANTOPRAZOLE SODIUM
     Route: 048
     Dates: start: 20170614, end: 20170707
  4. RISPERDAL [Concomitant]
     Active Substance: RISPERIDONE
     Dosage: THEN 2 MG FROM 03-JUL-2017 THEN 1.5 MG, 1 MG: 06-JUL-2017 TO 06-JUL-2017
     Dates: start: 20170626, end: 20170629
  5. LAEVOLAC [Concomitant]
     Active Substance: LACTULOSE
     Dosage: 2 EL
     Dates: start: 20170723
  6. ABILIFY [Suspect]
     Active Substance: ARIPIPRAZOLE
     Indication: PRODUCT USED FOR UNKNOWN INDICATION
     Dosage: 5 MG, QD, 7.5 MG FROM 04-JUL-2016,
     Route: 048
     Dates: start: 20170725, end: 20170726
  7. SELEXID [Concomitant]
     Dates: start: 20170627, end: 20170630
  8. SEROQUEL [Suspect]
     Active Substance: QUETIAPINE FUMARATE
     Indication: PRODUCT USED FOR UNKNOWN INDICATION
     Dosage: ALSO RECEIVED 175MG FROM 20-JUN-2017-20-JUN-2017, 500 MG FROM OCT-2016 TO 24-MAY-201
     Route: 048
     Dates: start: 20170619, end: 20170619
  9. LOVENOX [Concomitant]
     Active Substance: ENOXAPARIN SODIUM
     Dates: start: 20170621, end: 20170729
  10. LEPONEX [Suspect]
     Active Substance: CLOZAPINE
     Indication: PRODUCT USED FOR UNKNOWN INDICATION
     Dosage: 400 MG FROM 26-MAY-2017 TO 19-JUN-2017, 300 MG FROM OCT-2016 TO 25-MAY-2017
     Route: 048
     Dates: start: 20170614, end: 20170619
  11. AKINETON [Suspect]
     Active Substance: BIPERIDEN HYDROCHLORIDE
     Indication: PRODUCT USED FOR UNKNOWN INDICATION
     Route: 048
     Dates: start: 20170614
  12. PRAXITEN [Concomitant]
     Active Substance: OXAZEPAM
     Dosage: THEN 40MG FROM 19-JUN-20 17 TO 20-JUN-2017, 150 MG FROM 01-JUL-2017 TO 07-JUL-2017,50MG, 90 MG
     Route: 048
     Dates: start: 20170614, end: 20170616
  13. GLUCOPHAGE [Concomitant]
     Active Substance: METFORMIN HYDROCHLORIDE
     Route: 048
     Dates: start: 20170614, end: 20170703
  14. TEMESTA [LORAZEPAM] [Concomitant]
     Active Substance: LORAZEPAM
     Dates: start: 20170707, end: 20170719
  15. AMANTADINE. [Concomitant]
     Active Substance: AMANTADINE HYDROCHLORIDE
     Dates: start: 20170708, end: 20170719
  16. SODIUM CHLORIDE. [Concomitant]
     Active Substance: SODIUM CHLORIDE
     Route: 048
     Dates: start: 20170614, end: 20170620

REACTIONS (6)
  - Neuroleptic malignant syndrome [Recovered/Resolved]
  - Delirium [Recovered/Resolved]
  - Salivary hypersecretion [Unknown]
  - Psychotic disorder [Unknown]
  - Extrapyramidal disorder [Recovered/Resolved]
  - Pyrexia [Unknown]

NARRATIVE: CASE EVENT DATE: 20170619
